FAERS Safety Report 10737575 (Version 1)
Quarter: 2015Q1

REPORT INFORMATION
  Report Type: Spontaneous
  Country: US (occurrence: US)
  Receive Date: 20150126
  Receipt Date: 20150126
  Transmission Date: 20150721
  Serious: No
  Sender: FDA-Public Use
  Company Number: US-PFIZER INC-2015028794

PATIENT
  Sex: Male

DRUGS (4)
  1. LYRICA [Suspect]
     Active Substance: PREGABALIN
     Indication: PAIN
     Dosage: 75 MG, 3X/DAY
  2. LYRICA [Suspect]
     Active Substance: PREGABALIN
     Indication: SPINAL CORD INJURY
  3. LYRICA [Suspect]
     Active Substance: PREGABALIN
     Indication: MULTIPLE FRACTURES
  4. LYRICA [Suspect]
     Active Substance: PREGABALIN
     Indication: NERVE INJURY
     Dosage: 300 MG, 3X/DAY

REACTIONS (9)
  - Nervousness [Unknown]
  - Muscle disorder [Unknown]
  - Confusional state [Unknown]
  - Middle insomnia [Unknown]
  - Pain in extremity [Unknown]
  - Anxiety [Unknown]
  - Limb discomfort [Unknown]
  - Peripheral swelling [Unknown]
  - Urticaria [Unknown]
